FAERS Safety Report 5524242-7 (Version None)
Quarter: 2007Q4

REPORT INFORMATION
  Report Type: 
  Country: None (occurrence: None)
  Receive Date: 20071121
  Receipt Date: 20071108
  Transmission Date: 20080405
  Serious: Yes (Other)
  Sender: FDA-Public Use
  Company Number: JP-PFIZER INC-2007092184

PATIENT
  Age: 59 Year
  Sex: Female

DRUGS (8)
  1. AROMASIN [Suspect]
     Route: 048
  2. ASPIRIN [Concomitant]
     Route: 048
  3. ATELEC [Concomitant]
     Route: 048
  4. ADALAT [Concomitant]
     Route: 048
  5. GLYSENNID [Concomitant]
     Route: 048
  6. NITRODERM [Concomitant]
     Route: 062
  7. ISODINE [Concomitant]
     Route: 048
  8. RINDERON A [Concomitant]
     Route: 048

REACTIONS (1)
  - NEPHROTIC SYNDROME [None]
